FAERS Safety Report 12146998 (Version 1)
Quarter: 2016Q1

REPORT INFORMATION
  Report Type: Report from Study
  Country: IE (occurrence: IE)
  Receive Date: 20160304
  Receipt Date: 20160304
  Transmission Date: 20160526
  Serious: Yes (Hospitalization)
  Sender: FDA-Public Use
  Company Number: IE-ABBVIE-15K-229-1393416-00

PATIENT
  Sex: Female

DRUGS (3)
  1. FORSTEO [Concomitant]
     Active Substance: TERIPARATIDE
     Indication: OSTEOPOROSIS
  2. HUMIRA [Suspect]
     Active Substance: ADALIMUMAB
     Route: 058
     Dates: start: 20160220
  3. HUMIRA [Suspect]
     Active Substance: ADALIMUMAB
     Indication: CROHN^S DISEASE
     Route: 058
     Dates: start: 201403, end: 201601

REACTIONS (15)
  - Abasia [Unknown]
  - Fibromyalgia [Unknown]
  - Intestinal polyp [Unknown]
  - Intestinal haemorrhage [Unknown]
  - Pain [Unknown]
  - Joint swelling [Unknown]
  - Intervertebral disc protrusion [Unknown]
  - Spinal fusion acquired [Unknown]
  - Ankylosing spondylitis [Unknown]
  - Haemoglobin decreased [Unknown]
  - Colitis [Unknown]
  - Osteoporosis [Unknown]
  - Dysstasia [Unknown]
  - Weight decreased [Unknown]
  - Unevaluable event [Unknown]

NARRATIVE: CASE EVENT DATE: 2015
